FAERS Safety Report 24572108 (Version 1)
Quarter: 2024Q4

REPORT INFORMATION
  Report Type: Spontaneous
  Country: FI (occurrence: FI)
  Receive Date: 20241101
  Receipt Date: 20241101
  Transmission Date: 20250115
  Serious: Yes (Other)
  Sender: LUNDBECK
  Company Number: FI-LUNDBECK-DKLU4006106

PATIENT

DRUGS (16)
  1. VYEPTI [Suspect]
     Active Substance: EPTINEZUMAB-JJMR
     Indication: Product used for unknown indication
     Route: 041
  2. ESOMEPRAZOLE [Concomitant]
     Active Substance: ESOMEPRAZOLE
     Indication: Dyspepsia
     Dosage: 20 MILLIGRAM
     Route: 048
  3. METOCLOPRAMIDE [Concomitant]
     Active Substance: METOCLOPRAMIDE
     Indication: Product used for unknown indication
     Dosage: 10 MILLIGRAM
  4. VENLAFAXINE [Concomitant]
     Active Substance: VENLAFAXINE HYDROCHLORIDE
     Indication: Migraine
     Dosage: 37.5 MILLIGRAM
     Route: 048
  5. VENLAFAXINE [Concomitant]
     Active Substance: VENLAFAXINE HYDROCHLORIDE
     Indication: Depression
     Dosage: 75 MILLIGRAM
     Route: 048
  6. REVITELLE [Concomitant]
     Indication: Rhinitis allergic
     Dosage: 1 DOSAGE FORM
     Route: 048
  7. REVITELLE [Concomitant]
     Indication: Eye symptom
  8. ATARAX [Concomitant]
     Active Substance: HYDROXYZINE HYDROCHLORIDE
     Indication: Pruritus
     Dosage: 25 MILLIGRAM
     Route: 048
  9. RENNIE [CALCIUM CARBONATE;DIMETICONE;MAGNESIUM CARBONATE] [Concomitant]
     Indication: Dyspepsia
     Dosage: 1 DOSAGE FORM
     Route: 048
  10. KETOPROFEN [Concomitant]
     Active Substance: KETOPROFEN
     Indication: Gout
     Dosage: 1-2 TIMES A DAY
     Route: 048
  11. KETOPROFEN [Concomitant]
     Active Substance: KETOPROFEN
     Indication: Pain
  12. SUMATRIPTAN [Concomitant]
     Active Substance: SUMATRIPTAN
     Indication: Migraine
     Route: 045
  13. TIZANIDINE [Concomitant]
     Active Substance: TIZANIDINE
     Indication: Muscle spasms
     Dosage: 2 MILLIGRAM
     Route: 048
  14. ZOLMITRIPTAN [Concomitant]
     Active Substance: ZOLMITRIPTAN
     Indication: Migraine
     Dosage: 2.5 MILLIGRAM
     Route: 048
  15. ALMOTRIPTAN [Concomitant]
     Active Substance: ALMOTRIPTAN
     Indication: Product used for unknown indication
     Dosage: 12.5 MILLIGRAM
     Route: 048
  16. MOMETASONE [Concomitant]
     Active Substance: MOMETASONE
     Indication: Rhinitis allergic
     Route: 045

REACTIONS (5)
  - Throat irritation [Unknown]
  - Hypoaesthesia [Unknown]
  - Nasopharyngitis [Unknown]
  - Influenza like illness [Unknown]
  - Tongue pruritus [Unknown]
